FAERS Safety Report 5795866-7 (Version None)
Quarter: 2008Q3

REPORT INFORMATION
  Report Type: 
  Country: None (occurrence: None)
  Receive Date: 20080701
  Receipt Date: 20080619
  Transmission Date: 20090109
  Serious: Yes (Hospitalization, Other)
  Sender: FDA-Public Use
  Company Number: JP-NOVOPROD-276322

PATIENT
  Sex: Female
  Weight: 68 kg

DRUGS (3)
  1. PENFILL 30R CHU [Suspect]
     Indication: TYPE 2 DIABETES MELLITUS
  2. NOVORAPID CHU [Suspect]
     Indication: TYPE 2 DIABETES MELLITUS
     Dates: start: 20070209, end: 20070417
  3. GLUFAST [Concomitant]
     Indication: TYPE 2 DIABETES MELLITUS
     Dosage: 30 MG, QD
     Route: 048
     Dates: start: 20070501, end: 20070802

REACTIONS (2)
  - ANOREXIA NERVOSA [None]
  - HYPOGLYCAEMIA [None]
